FAERS Safety Report 13403559 (Version 3)
Quarter: 2017Q2

REPORT INFORMATION
  Report Type: Spontaneous
  Country: IE (occurrence: IE)
  Receive Date: 20170404
  Receipt Date: 20170509
  Transmission Date: 20170830
  Serious: Yes (Other)
  Sender: FDA-Public Use
  Company Number: PHHY2017IE045889

PATIENT
  Age: 31 Year
  Sex: Female

DRUGS (1)
  1. LEONORE [Suspect]
     Active Substance: ETHINYL ESTRADIOL\LEVONORGESTREL
     Indication: CHEMICAL CONTRACEPTION
     Dosage: 120 UG, QD
     Route: 048
     Dates: start: 20170216, end: 20170322

REACTIONS (2)
  - Acne [Recovered/Resolved]
  - Pigmentation disorder [Recovered/Resolved]
